FAERS Safety Report 9397726 (Version 1)
Quarter: 2013Q3

REPORT INFORMATION
  Report Type: Spontaneous
  Country: JP (occurrence: JP)
  Receive Date: 20130712
  Receipt Date: 20130712
  Transmission Date: 20140515
  Serious: Yes (Other)
  Sender: FDA-Public Use
  Company Number: JP-ASTELLAS-2013JP007530

PATIENT
  Age: 26 Year
  Sex: Male

DRUGS (12)
  1. PROGRAF [Suspect]
     Indication: PROPHYLAXIS AGAINST GRAFT VERSUS HOST DISEASE
     Dosage: UNK
     Route: 065
  2. FLUDARABINE [Concomitant]
     Indication: PREMEDICATION
     Dosage: 30 MG/M2, UNKNOWN/D
     Route: 065
  3. ETOPOSIDE [Concomitant]
     Indication: PREMEDICATION
     Dosage: 30 MG/KG, UNKNOWN/D
     Route: 065
  4. BUSULFAN [Concomitant]
     Indication: PREMEDICATION
     Dosage: 3.2 MG/KG, UNKNOWN/D
     Route: 042
  5. MELPHALAN [Concomitant]
     Indication: PREMEDICATION
     Dosage: 70 MG/M2, UNKNOWN/D
     Route: 065
  6. ANTITHYMOCYTE IMMUNOGLOBULIN [Concomitant]
     Indication: PREMEDICATION
     Dosage: 2.5 MG/KG, UNKNOWN/D
     Route: 065
  7. IDARUBICIN [Concomitant]
     Route: 065
  8. IDARUBICIN [Concomitant]
     Route: 065
  9. CYTARABINE [Concomitant]
     Route: 065
  10. CYTARABINE [Concomitant]
     Route: 065
  11. CYTARABINE [Concomitant]
     Route: 065
  12. METHOTREXATE [Concomitant]
     Indication: PROPHYLAXIS AGAINST GRAFT VERSUS HOST DISEASE
     Route: 065

REACTIONS (2)
  - Drug ineffective [Unknown]
  - Acute graft versus host disease [Recovering/Resolving]
